FAERS Safety Report 25800652 (Version 1)
Quarter: 2025Q3

REPORT INFORMATION
  Report Type: Spontaneous
  Country: RU (occurrence: RU)
  Receive Date: 20250915
  Receipt Date: 20250915
  Transmission Date: 20251020
  Serious: Yes (Death)
  Sender: ROCHE
  Company Number: RU-ROCHE-10000387046

PATIENT
  Age: 71 Year

DRUGS (2)
  1. ALECTINIB [Suspect]
     Active Substance: ALECTINIB
     Indication: Non-small cell lung cancer
     Route: 065
  2. CERITINIB [Concomitant]
     Active Substance: CERITINIB

REACTIONS (1)
  - Death [Fatal]
